FAERS Safety Report 13891140 (Version 2)
Quarter: 2017Q3

REPORT INFORMATION
  Report Type: Spontaneous
  Country: BR (occurrence: BR)
  Receive Date: 20170822
  Receipt Date: 20170912
  Transmission Date: 20171127
  Serious: Yes (Hospitalization)
  Sender: FDA-Public Use
  Company Number: BR-PFIZER INC-2017346380

PATIENT
  Age: 39 Year
  Sex: Female

DRUGS (4)
  1. FELDENE [Suspect]
     Active Substance: PIROXICAM
     Indication: ABDOMINAL PAIN
  2. FELDENE [Suspect]
     Active Substance: PIROXICAM
     Indication: ABDOMINAL PAIN
     Dosage: 2 DF, TWO DAYS BEFORE MENSTRUATION AND TWO DAYS AFTER MENSTRUATION
     Route: 048
  3. FELDENE [Suspect]
     Active Substance: PIROXICAM
     Indication: MALAISE
  4. FELDENE [Suspect]
     Active Substance: PIROXICAM
     Indication: HEADACHE

REACTIONS (5)
  - Leiomyoma [Not Recovered/Not Resolved]
  - Dysmenorrhoea [Recovered/Resolved]
  - Product use in unapproved indication [Unknown]
  - Menstrual disorder [Not Recovered/Not Resolved]
  - Syncope [Recovered/Resolved]

NARRATIVE: CASE EVENT DATE: 201706
